FAERS Safety Report 24698241 (Version 1)
Quarter: 2024Q4

REPORT INFORMATION
  Report Type: Spontaneous
  Country: DE (occurrence: DE)
  Receive Date: 20241204
  Receipt Date: 20241204
  Transmission Date: 20250115
  Serious: Yes (Other)
  Sender: SANDOZ
  Company Number: DE-BRISTOL-MYERS SQUIBB COMPANY-2024-179713

PATIENT
  Age: 67 Year
  Sex: Male
  Weight: 88 kg

DRUGS (16)
  1. FLUOROURACIL [Suspect]
     Active Substance: FLUOROURACIL
     Indication: Oesophageal adenocarcinoma
     Dosage: 4305.000MG BIW
     Route: 042
     Dates: start: 20240808
  2. OXALIPLATIN [Suspect]
     Active Substance: OXALIPLATIN
     Indication: Oesophageal adenocarcinoma
     Dosage: 87.000MG BIW
     Route: 042
     Dates: start: 20240808, end: 20240926
  3. OPDIVO [Suspect]
     Active Substance: NIVOLUMAB
     Indication: Oesophageal adenocarcinoma
     Dosage: 240.000MG BIW
     Route: 042
     Dates: start: 20240808
  4. DIMETHINDENE [Concomitant]
     Active Substance: DIMETHINDENE
     Indication: Product used for unknown indication
     Dosage: 4.000MG QD
     Route: 042
     Dates: start: 20240926, end: 20240926
  5. FILGRASTIM [Concomitant]
     Active Substance: FILGRASTIM
     Indication: Product used for unknown indication
     Dosage: DOSE 30 I.E
     Route: 058
     Dates: start: 20241002, end: 20241006
  6. FILGRASTIM [Concomitant]
     Active Substance: FILGRASTIM
     Dosage: DOSE 30 I.E
     Route: 058
     Dates: start: 20240918, end: 20240922
  7. FILGRASTIM [Concomitant]
     Active Substance: FILGRASTIM
     Dosage: DOSE 30 I.E
     Route: 058
     Dates: start: 20241017, end: 20241021
  8. FILGRASTIM [Concomitant]
     Active Substance: FILGRASTIM
     Dosage: DOSE 30 I.E
     Route: 058
     Dates: start: 20241031, end: 20241104
  9. LOPERAMIDE [Concomitant]
     Active Substance: LOPERAMIDE
     Indication: Prophylaxis
     Dosage: 2.000MG QD
     Route: 048
     Dates: start: 20240807
  10. METOCLOPRAMIDE [Concomitant]
     Active Substance: METOCLOPRAMIDE
     Indication: Prophylaxis
     Dosage: 10.000MG
     Route: 048
     Dates: start: 20240807
  11. OMEPRAZOLE [Concomitant]
     Active Substance: OMEPRAZOLE
     Indication: Prophylaxis
     Dosage: 40.000MG QD
     Route: 048
  12. RAMIPRIL [Concomitant]
     Active Substance: RAMIPRIL
     Indication: Product used for unknown indication
     Dosage: 10.000MG QD
     Route: 048
  13. RANITIDINE HYDROCHLORIDE [Concomitant]
     Active Substance: RANITIDINE HYDROCHLORIDE
     Indication: Product used for unknown indication
     Dosage: 75.000MG QD
     Route: 042
     Dates: start: 20240926, end: 20240926
  14. SIMVASTATIN [Concomitant]
     Active Substance: SIMVASTATIN
     Indication: Product used for unknown indication
     Dosage: 40.000MG QD
     Route: 048
  15. PREDNISOLONE SODIUM SUCCINATE [Concomitant]
     Active Substance: PREDNISOLONE SODIUM SUCCINATE
     Indication: Product used for unknown indication
     Dosage: 250.000MG QD
     Route: 042
     Dates: start: 20240926, end: 20240926
  16. CHOLECALCIFEROL [Concomitant]
     Active Substance: CHOLECALCIFEROL
     Indication: Prophylaxis
     Dosage: DOSE: 2000 I.E
     Route: 048

REACTIONS (7)
  - Drug hypersensitivity [Recovered/Resolved]
  - Pancytopenia [Not Recovered/Not Resolved]
  - Thrombocytopenia [Recovered/Resolved]
  - Neutropenia [Recovered/Resolved]
  - Leukocytosis [Recovered/Resolved]
  - Stomatitis [Recovered/Resolved]
  - Pyrexia [Recovered/Resolved]

NARRATIVE: CASE EVENT DATE: 20240912
